FAERS Safety Report 18361881 (Version 1)
Quarter: 2020Q4

REPORT INFORMATION
  Report Type: Spontaneous
  Country: US (occurrence: US)
  Receive Date: 20201008
  Receipt Date: 20201008
  Transmission Date: 20210114
  Serious: No
  Sender: FDA-Public Use
  Company Number: US-BAUSCH-BL-2020-027284

PATIENT
  Sex: Female

DRUGS (2)
  1. RETIN-A [Suspect]
     Active Substance: TRETINOIN
     Indication: OFF LABEL USE
  2. RETIN-A [Suspect]
     Active Substance: TRETINOIN
     Indication: ROSACEA
     Dosage: NIGHT TIME
     Route: 061
     Dates: start: 202003

REACTIONS (4)
  - Skin exfoliation [Not Recovered/Not Resolved]
  - Off label use [Unknown]
  - Rash [Unknown]
  - Dry skin [Not Recovered/Not Resolved]

NARRATIVE: CASE EVENT DATE: 2020
